FAERS Safety Report 12517630 (Version 4)
Quarter: 2016Q3

REPORT INFORMATION
  Report Type: Report from Study
  Country: BR (occurrence: BR)
  Receive Date: 20160630
  Receipt Date: 20160802
  Transmission Date: 20161109
  Serious: Yes (Death, Hospitalization)
  Sender: FDA-Public Use
  Company Number: PHHY2016BR083743

PATIENT
  Age: 58 Year
  Sex: Male
  Weight: 48 kg

DRUGS (2)
  1. SANDOSTATIN LAR DEPOT [Suspect]
     Active Substance: OCTREOTIDE ACETATE
     Indication: ACROMEGALY
     Dosage: 30 MG, QMO (EVERY 28 DAYS)
     Route: 030
     Dates: start: 2015
  2. SANDOSTATIN LAR DEPOT [Suspect]
     Active Substance: OCTREOTIDE ACETATE
     Indication: MULTIPLE ENDOCRINE NEOPLASIA

REACTIONS (8)
  - Anaemia [Unknown]
  - Dyspnoea [Unknown]
  - Multiple organ dysfunction syndrome [Fatal]
  - Multiple endocrine neoplasia [Fatal]
  - Asthenia [Unknown]
  - Apathy [Unknown]
  - Malaise [Unknown]
  - Pain [Unknown]

NARRATIVE: CASE EVENT DATE: 20160704
